FAERS Safety Report 9098095 (Version 1)
Quarter: 2013Q1

REPORT INFORMATION
  Report Type: Spontaneous
  Country: MX (occurrence: MX)
  Receive Date: 20130213
  Receipt Date: 20130213
  Transmission Date: 20140127
  Serious: Yes (Other)
  Sender: FDA-Public Use
  Company Number: PHHY2013MX013690

PATIENT
  Age: 70 Year
  Sex: Female

DRUGS (1)
  1. CO-DIOVAN [Suspect]
     Indication: HYPERTENSION
     Dosage: 1 DF (160/12.5MG), DAILY
     Route: 048
     Dates: start: 201212, end: 201301

REACTIONS (2)
  - Cataract [Recovered/Resolved]
  - Hypertension [Recovered/Resolved]
